FAERS Safety Report 18618359 (Version 1)
Quarter: 2020Q4

REPORT INFORMATION
  Report Type: Spontaneous
  Country: GR (occurrence: GR)
  Receive Date: 20201215
  Receipt Date: 20201215
  Transmission Date: 20210114
  Serious: Yes (Other)
  Sender: FDA-Public Use
  Company Number: GR-ASTRAZENECA-2020SF64602

PATIENT
  Sex: Female

DRUGS (11)
  1. PALBOCICLIB [Suspect]
     Active Substance: PALBOCICLIB
     Indication: BREAST CANCER FEMALE
     Dosage: 125 MG 1 X1 FOR 21 DAYS
     Route: 048
  2. TAMOXIFEN [Suspect]
     Active Substance: TAMOXIFEN
     Indication: BREAST CANCER METASTATIC
     Route: 048
  3. FULVESTRANT. [Suspect]
     Active Substance: FULVESTRANT
     Indication: BREAST CANCER FEMALE
     Route: 030
  4. CAPECITABINE. [Concomitant]
     Active Substance: CAPECITABINE
     Dosage: 2000 MG AM - 1500 MG PM
  5. LETROZOLE. [Concomitant]
     Active Substance: LETROZOLE
     Dates: start: 2013
  6. NAB-PACLITAXEL [Concomitant]
     Active Substance: PACLITAXEL
     Dosage: 125 MG/M2; COMPLETED 5 CYCLES
     Dates: end: 201905
  7. ERIBULIN [Concomitant]
     Active Substance: ERIBULIN
  8. OLAPARIB. [Suspect]
     Active Substance: OLAPARIB
     Route: 048
  9. EVEROLIMUS. [Concomitant]
     Active Substance: EVEROLIMUS
     Dates: start: 201609, end: 201612
  10. EPIRUBICIN [Concomitant]
     Active Substance: EPIRUBICIN
     Dosage: 90 MG/M2 EVERY 21 DAYS; RECEIVED 8 CYCLES
     Dates: end: 201806
  11. EXEMESTANE. [Concomitant]
     Active Substance: EXEMESTANE
     Dates: start: 201609, end: 201612

REACTIONS (7)
  - Uterine disorder [Unknown]
  - Metastases to liver [Unknown]
  - Malignant neoplasm progression [Unknown]
  - Metastases to peritoneum [Unknown]
  - Breast cancer recurrent [Unknown]
  - Metastases to abdominal cavity [Unknown]
  - Metastases to bone [Unknown]
